FAERS Safety Report 10084281 (Version 2)
Quarter: 2014Q2

REPORT INFORMATION
  Report Type: Spontaneous
  Country: JP (occurrence: JP)
  Receive Date: 20140417
  Receipt Date: 20140424
  Transmission Date: 20141212
  Serious: No
  Sender: FDA-Public Use
  Company Number: JP-PFIZER INC-2014102386

PATIENT
  Age: 82 Year
  Sex: Female

DRUGS (17)
  1. DIFLUCAN [Suspect]
     Indication: ARTHRITIS BACTERIAL
     Dosage: 200 MG, UNK
     Route: 048
     Dates: start: 20140304, end: 20140316
  2. DIFLUCAN [Suspect]
     Indication: CANDIDA INFECTION
  3. ALDACTONE [Concomitant]
  4. EBRANTIL [Concomitant]
  5. UBRETID [Concomitant]
  6. PREDNISOLONE [Concomitant]
  7. MUCODYNE [Concomitant]
  8. METHYCOBAL [Concomitant]
  9. ERYTHROCIN [Concomitant]
  10. ALFAROL [Concomitant]
  11. GASMOTIN [Concomitant]
  12. LASIX [Concomitant]
  13. THYRADIN [Concomitant]
  14. RIVOTRIL [Concomitant]
  15. MEVALOTIN [Concomitant]
  16. ANPLAG [Concomitant]
  17. TRAZENTA [Concomitant]

REACTIONS (1)
  - Creatinine renal clearance decreased [Recovered/Resolved]
